FAERS Safety Report 18126410 (Version 2)
Quarter: 2020Q3

REPORT INFORMATION
  Report Type: Spontaneous
  Country: US (occurrence: US)
  Receive Date: 20200808
  Receipt Date: 20200812
  Transmission Date: 20201103
  Serious: No
  Sender: FDA-Public Use
  Company Number: US-TEVA-2020-US-1812126

PATIENT

DRUGS (1)
  1. BUPRENORPHINE TEVA [Suspect]
     Active Substance: BUPRENORPHINE
     Dosage: 1 PER WEEK EVERY THURSDAY
     Route: 065

REACTIONS (7)
  - Product substitution issue [Unknown]
  - Product adhesion issue [Unknown]
  - Feeling hot [Unknown]
  - Drug delivery system issue [Unknown]
  - Muscle spasms [Unknown]
  - Dyskinesia [Unknown]
  - Drug ineffective [Unknown]

NARRATIVE: CASE EVENT DATE: 20200731
